FAERS Safety Report 16378744 (Version 2)
Quarter: 2019Q2

REPORT INFORMATION
  Report Type: Report from Study
  Country: JP (occurrence: JP)
  Receive Date: 20190531
  Receipt Date: 20190611
  Transmission Date: 20190711
  Serious: Yes (Other)
  Sender: FDA-Public Use
  Company Number: JP-JNJFOC-20190534010

PATIENT
  Age: 27 Year
  Sex: Male
  Weight: 57 kg

DRUGS (10)
  1. SIRTURO [Suspect]
     Active Substance: BEDAQUILINE FUMARATE
     Indication: PULMONARY TUBERCULOSIS
     Route: 048
     Dates: start: 20180905, end: 20181216
  2. CYCLOSERINE. [Suspect]
     Active Substance: CYCLOSERINE
     Indication: PULMONARY TUBERCULOSIS
     Route: 048
     Dates: start: 20180402, end: 20181016
  3. KANAMYCIN SULFATE [Concomitant]
     Active Substance: KANAMYCIN SULFATE
     Indication: PULMONARY TUBERCULOSIS
     Route: 065
     Dates: start: 20180402
  4. LINEZOLID. [Concomitant]
     Active Substance: LINEZOLID
     Indication: PULMONARY TUBERCULOSIS
     Route: 048
     Dates: start: 20180402
  5. ALUMINO-NIPPAS CALCIUM [Concomitant]
     Active Substance: AMINOSALICYLATE CALCIUM ALUMINIUM
     Indication: PULMONARY TUBERCULOSIS
     Route: 048
     Dates: start: 20180530
  6. SIRTURO [Suspect]
     Active Substance: BEDAQUILINE FUMARATE
     Indication: PULMONARY TUBERCULOSIS
     Route: 048
     Dates: start: 20180822, end: 20180904
  7. CALCIUM PARA-AMINOSALICYLATE [Concomitant]
     Indication: PULMONARY TUBERCULOSIS
     Route: 048
     Dates: start: 20180530
  8. ALUMINO-NIPPAS CALCIUM [Concomitant]
     Active Substance: AMINOSALICYLATE CALCIUM ALUMINIUM
     Indication: PULMONARY TUBERCULOSIS
     Route: 048
     Dates: start: 20180402, end: 2018
  9. CALCIUM PARA-AMINOSALICYLATE [Concomitant]
     Indication: PULMONARY TUBERCULOSIS
     Route: 048
     Dates: start: 20180402, end: 2018
  10. CRAVIT [Concomitant]
     Active Substance: LEVOFLOXACIN
     Indication: PULMONARY TUBERCULOSIS
     Route: 048
     Dates: start: 20180530

REACTIONS (1)
  - Delirium [Recovered/Resolved]

NARRATIVE: CASE EVENT DATE: 20181013
